FAERS Safety Report 6438182-2 (Version None)
Quarter: 2009Q4

REPORT INFORMATION
  Report Type: 
  Country: None (occurrence: None)
  Receive Date: 20091112
  Receipt Date: 20091103
  Transmission Date: 20100525
  Serious: Yes (Other)
  Sender: FDA-Public Use
  Company Number: US-CELGENEUS-163-21880-09101047

PATIENT
  Sex: Female

DRUGS (3)
  1. REVLIMID [Suspect]
     Indication: MULTIPLE MYELOMA
     Route: 048
     Dates: start: 20070605
  2. REVLIMID [Suspect]
     Route: 048
     Dates: start: 20091001, end: 20090101
  3. DEXAMETHASONE [Concomitant]
     Indication: DRUG USE FOR UNKNOWN INDICATION
     Route: 065
     Dates: start: 20090101

REACTIONS (23)
  - AMNESIA [None]
  - AREFLEXIA [None]
  - ASTHENIA [None]
  - BALANCE DISORDER [None]
  - BLINDNESS [None]
  - BLOOD COUNT ABNORMAL [None]
  - BLOOD PRESSURE DECREASED [None]
  - BLOOD PRESSURE INCREASED [None]
  - CHEST DISCOMFORT [None]
  - COGNITIVE DISORDER [None]
  - CONSTIPATION [None]
  - GAIT DISTURBANCE [None]
  - HEART RATE DECREASED [None]
  - LACTOSE INTOLERANCE [None]
  - MUSCLE SPASMS [None]
  - NAUSEA [None]
  - NEUROPATHY PERIPHERAL [None]
  - OEDEMA PERIPHERAL [None]
  - PANCREATIC DISORDER [None]
  - SOMNOLENCE [None]
  - TINNITUS [None]
  - TREMOR [None]
  - VOMITING [None]
